FAERS Safety Report 5468841-X (Version None)
Quarter: 2007Q3

REPORT INFORMATION
  Report Type: 
  Country: None (occurrence: None)
  Receive Date: 20070926
  Receipt Date: 20070914
  Transmission Date: 20080115
  Serious: Yes (Hospitalization, Other)
  Sender: FDA-Public Use
  Company Number: US-PFIZER INC-2007077729

PATIENT
  Sex: Female
  Weight: 77.3 kg

DRUGS (9)
  1. CHANTIX [Suspect]
     Indication: SMOKING CESSATION THERAPY
  2. OMEPRAZOLE [Concomitant]
  3. PLAVIX [Concomitant]
  4. VASOTEC [Concomitant]
  5. IMDUR [Concomitant]
  6. ZEBETA [Concomitant]
  7. BISOPROLOL [Concomitant]
  8. VYTORIN [Concomitant]
  9. ASPIRIN [Concomitant]

REACTIONS (6)
  - ABNORMAL DREAMS [None]
  - CARDIAC DISORDER [None]
  - CONSTIPATION [None]
  - DIABETES MELLITUS [None]
  - INSOMNIA [None]
  - NAUSEA [None]
